FAERS Safety Report 7382337 (Version 1)
Quarter: 2020Q3

REPORT INFORMATION
  Report Type: Report from Study
  Country: BR (occurrence: BR)
  Receive Date: 20100510
  Receipt Date: 20100510
  Transmission Date: 20201104
  Serious: Yes (Hospitalization)
  Sender: FDA-Public Use
  Company Number: BR-WYE-H14846310

PATIENT
  Age: 56 Year
  Sex: Male
  Weight: 82 kg

DRUGS (3)
  1. INTERFERON ALFA NOS [Suspect]
     Active Substance: INTERFERON ALFA-2A OR INTERFERON ALFA-2B
     Dosage: 6 MU ? FREQUENCY NOT SPECIFIED
     Route: 042
     Dates: start: 20100118, end: 20100331
  2. BEVACIZUMAB. [Suspect]
     Active Substance: BEVACIZUMAB
     Dosage: 10 MG/KG ? FREQUENCY NOT SPECIFIED
     Route: 042
     Dates: start: 20091216, end: 20100324
  3. INTERFERON ALFA NOS [Suspect]
     Active Substance: INTERFERON ALFA-2A OR INTERFERON ALFA-2B
     Dosage: 9 MU ? FREQUENCY NOT SPECIFIED
     Route: 042
     Dates: start: 20091216, end: 201001

REACTIONS (1)
  - Peritonitis [Not Recovered/Not Resolved]

NARRATIVE: CASE EVENT DATE: 20100426
